FAERS Safety Report 4421014-1 (Version None)
Quarter: 2004Q3

REPORT INFORMATION
  Report Type: 
  Country: None (occurrence: None)
  Receive Date: 20040809
  Receipt Date: 20040716
  Transmission Date: 20050211
  Serious: Yes (Other)
  Sender: FDA-Public Use
  Company Number: NL-GLAXOSMITHKLINE-B0339813A

PATIENT

DRUGS (3)
  1. VALACYCLOVIR HCL [Suspect]
     Route: 048
  2. UNKNOWN CANCER THERAPY DRUG [Concomitant]
     Route: 065
  3. XELODA [Concomitant]
     Route: 065

REACTIONS (3)
  - CONFUSIONAL STATE [None]
  - MUCOSAL INFLAMMATION [None]
  - PNEUMONIA [None]
